FAERS Safety Report 5223194-7 (Version None)
Quarter: 2007Q1

REPORT INFORMATION
  Report Type: 
  Country: None (occurrence: None)
  Receive Date: 20061201
  Receipt Date: 20060822
  Transmission Date: 20070707
  Serious: No
  Sender: FDA-Public Use
  Company Number: 2006PV007844

PATIENT
  Age: 58 Year
  Sex: Female
  Weight: 86.1834 kg

DRUGS (2)
  1. BYETTA [Suspect]
     Indication: DIABETES MELLITUS NON-INSULIN-DEPENDENT
     Dosage: 5 MCG; BID; SC
     Route: 058
     Dates: start: 20051201
  2. METFORMIN HCL [Concomitant]

REACTIONS (14)
  - BLOOD GLUCOSE DECREASED [None]
  - BLOOD GLUCOSE INCREASED [None]
  - DIARRHOEA [None]
  - DRUG EFFECT DECREASED [None]
  - FATIGUE [None]
  - INJECTION SITE PAIN [None]
  - MUSCLE SPASMS [None]
  - NAUSEA [None]
  - PAIN [None]
  - RETCHING [None]
  - THERAPEUTIC RESPONSE UNEXPECTED [None]
  - VISUAL DISTURBANCE [None]
  - VOMITING [None]
  - WEIGHT DECREASED [None]
